FAERS Safety Report 7740469-8 (Version None)
Quarter: 2011Q3

REPORT INFORMATION
  Report Type: 
  Country: None (occurrence: None)
  Receive Date: 20110909
  Receipt Date: 20110830
  Transmission Date: 20111222
  Serious: Yes (Hospitalization, Other)
  Sender: FDA-Public Use
  Company Number: US-GENZYME-CLOF-1001773

PATIENT
  Age: 69 Year
  Sex: Female
  Weight: 62.132 kg

DRUGS (4)
  1. PAXIL [Concomitant]
     Indication: BIPOLAR DISORDER
     Dosage: UNK
     Route: 065
  2. CYTARABINE [Suspect]
     Indication: ACUTE MYELOID LEUKAEMIA
     Dosage: 20 MG/M2, QD ON DAYS 1-14
     Route: 065
     Dates: start: 20110804
  3. CLOLAR [Suspect]
     Indication: ACUTE MYELOID LEUKAEMIA
     Dosage: 20 MG, QD ON DAYS 1-5
     Route: 048
     Dates: start: 20110804, end: 20110808
  4. LITHIUM [Concomitant]
     Indication: BIPOLAR DISORDER
     Dosage: UNK
     Route: 065

REACTIONS (4)
  - LEUKAEMIA CUTIS [None]
  - DELIRIUM [None]
  - FEBRILE NEUTROPENIA [None]
  - MENTAL STATUS CHANGES [None]
